FAERS Safety Report 9768150 (Version 1)
Quarter: 2013Q4

REPORT INFORMATION
  Report Type: Report from Study
  Country: US (occurrence: US)
  Receive Date: 20131217
  Receipt Date: 20131217
  Transmission Date: 20140711
  Serious: Yes (Other)
  Sender: FDA-Public Use
  Company Number: US-GLAXOSMITHKLINE-A1053770A

PATIENT
  Sex: 0

DRUGS (2)
  1. FLONASE [Suspect]
     Indication: NASAL CONGESTION
     Route: 045
  2. FLUTICASONE PROPIONATE [Suspect]
     Indication: NASAL CONGESTION
     Route: 065

REACTIONS (2)
  - Haemorrhage [Unknown]
  - Drug ineffective [Unknown]
